FAERS Safety Report 25225793 (Version 1)
Quarter: 2025Q2

REPORT INFORMATION
  Report Type: Spontaneous
  Country: US (occurrence: US)
  Receive Date: 20250422
  Receipt Date: 20250422
  Transmission Date: 20250717
  Serious: No
  Sender: SANOFI AVENTIS
  Company Number: US-SA-2025SA114987

PATIENT
  Age: 77 Year
  Sex: Male

DRUGS (17)
  1. DUPIXENT [Suspect]
     Active Substance: DUPILUMAB
     Indication: Nasal polyps
     Dosage: 300 MG, QOW
     Route: 058
  2. ASPIRIN [Concomitant]
     Active Substance: ASPIRIN
  3. BUDESONIDE [Concomitant]
     Active Substance: BUDESONIDE
  4. DONEPEZIL HYDROCHLORIDE [Concomitant]
     Active Substance: DONEPEZIL HYDROCHLORIDE
  5. ENALAPRIL MALEATE [Concomitant]
     Active Substance: ENALAPRIL MALEATE
  6. ISOSORBIDE [Concomitant]
     Active Substance: ISOSORBIDE
  7. LEVOTHYROXINE [Concomitant]
     Active Substance: LEVOTHYROXINE
  8. MEMANTINE [Concomitant]
     Active Substance: MEMANTINE
  9. METFORMIN HYDROCHLORIDE [Concomitant]
     Active Substance: METFORMIN HYDROCHLORIDE
  10. VITAMINS [Concomitant]
     Active Substance: VITAMINS
  11. OZEMPIC [Concomitant]
     Active Substance: SEMAGLUTIDE
  12. RANOLAZINE [Concomitant]
     Active Substance: RANOLAZINE
  13. SIMVASTATIN [Concomitant]
     Active Substance: SIMVASTATIN
  14. TOUJEO [Concomitant]
     Active Substance: INSULIN GLARGINE
  15. TRELEGY ELLIPTA [Concomitant]
     Active Substance: FLUTICASONE FUROATE\UMECLIDINIUM BROMIDE\VILANTEROL TRIFENATATE
  16. TRIAMTERENE [Concomitant]
     Active Substance: TRIAMTERENE
  17. VASCEPA [Concomitant]
     Active Substance: ICOSAPENT ETHYL

REACTIONS (1)
  - Sleep disorder due to a general medical condition [Not Recovered/Not Resolved]
